FAERS Safety Report 5200829-6 (Version None)
Quarter: 2007Q1

REPORT INFORMATION
  Report Type: 
  Country: None (occurrence: None)
  Receive Date: 20070108
  Receipt Date: 20061229
  Transmission Date: 20070707
  Serious: Yes (Hospitalization)
  Sender: FDA-Public Use
  Company Number: FR-JNJFOC-20061202325

PATIENT
  Age: 77 Year
  Sex: Female

DRUGS (10)
  1. CAELYX [Suspect]
     Indication: METASTASES TO BONE
     Route: 042
  2. CAELYX [Suspect]
     Indication: BREAST CANCER METASTATIC
     Route: 042
  3. VITAMIN B6 [Concomitant]
  4. LORAZEPAM [Concomitant]
  5. EFFERALGAN CODEINE [Concomitant]
  6. CORTANCYL [Concomitant]
  7. NEURONTIN [Concomitant]
  8. AMITRIPTYLINE HCL [Concomitant]
  9. POLYETHYLENE GLYCOL [Concomitant]
  10. GLUCOSE [Concomitant]

REACTIONS (7)
  - AMNESIA [None]
  - ASTHENIA [None]
  - BLOOD PRESSURE SYSTOLIC DECREASED [None]
  - CHEST PAIN [None]
  - DYSPNOEA [None]
  - INFUSION RELATED REACTION [None]
  - SYNCOPE [None]
